FAERS Safety Report 8078500-5 (Version None)
Quarter: 2012Q1

REPORT INFORMATION
  Report Type: 
  Country: None (occurrence: None)
  Receive Date: 20120127
  Receipt Date: 20120127
  Transmission Date: 20120608
  Serious: Yes (Hospitalization)
  Sender: FDA-Public Use
  Company Number: None

PATIENT
  Sex: Female
  Weight: 97.7 kg

DRUGS (1)
  1. ERBITUX [Suspect]
     Dosage: 4000 MG
     Dates: start: 20111116, end: 20120104

REACTIONS (1)
  - PNEUMONIA [None]
